FAERS Safety Report 8806703 (Version 9)
Quarter: 2021Q3

REPORT INFORMATION
  Report Type: Report from Study
  Country: CA (occurrence: CA)
  Receive Date: 20120925
  Receipt Date: 20210916
  Transmission Date: 20211014
  Serious: Yes (Hospitalization, Other)
  Sender: FDA-Public Use
  Company Number: PHHY2012CA020266

PATIENT
  Age: 52 Year
  Sex: Male

DRUGS (13)
  1. SANDOSTATIN LAR DEPOT [Suspect]
     Active Substance: OCTREOTIDE ACETATE
  2. SANDOSTATIN [Suspect]
     Active Substance: OCTREOTIDE ACETATE
     Dosage: 1 OR 2 TIMES A DAY
     Route: 058
  3. TESTOSTERONE. [Concomitant]
     Active Substance: TESTOSTERONE
     Indication: BLOOD TESTOSTERONE DECREASED
     Dosage: UNK
     Route: 065
  4. CHAMPIX [Concomitant]
     Active Substance: VARENICLINE TARTRATE
     Indication: SMOKING CESSATION THERAPY
     Dosage: UNK
     Route: 065
     Dates: start: 20141103
  5. SANDOSTATIN [Suspect]
     Active Substance: OCTREOTIDE ACETATE
     Indication: ACROMEGALY
     Dosage: 100 MCG/ML, UNK
     Route: 058
  6. GABAPENTIN. [Suspect]
     Active Substance: GABAPENTIN
     Dosage: 300 MG, TID (6 UNK 2017)
     Route: 048
  7. SANDOSTATIN LAR DEPOT [Suspect]
     Active Substance: OCTREOTIDE ACETATE
     Dosage: 30 MG, QMO (EVERY 4 WEEKS)
     Route: 030
     Dates: start: 20120402
  8. NALTREXONE HYDROCHLORIDE. [Concomitant]
     Active Substance: NALTREXONE HYDROCHLORIDE
     Indication: ALCOHOL ABUSE
     Dosage: 50 MG (1/2 TABLET FOR 10 DAY AND THEN FULL TABLET), UNK
     Route: 065
     Dates: start: 20181107
  9. SANDOSTATIN [Suspect]
     Active Substance: OCTREOTIDE ACETATE
  10. FENOFIBRATE. [Suspect]
     Active Substance: FENOFIBRATE
     Indication: PRODUCT USED FOR UNKNOWN INDICATION
     Dosage: 200 MG, QD
     Route: 065
  11. GABAPENTIN. [Suspect]
     Active Substance: GABAPENTIN
     Dosage: 300 MG, BID
     Route: 065
     Dates: start: 201702
  12. SANDOSTATIN LAR DEPOT [Suspect]
     Active Substance: OCTREOTIDE ACETATE
     Indication: ACROMEGALY
     Dosage: 30 MG, QMO (EVERY 4 WEEKS)
     Route: 030
     Dates: start: 19990101
  13. GABAPENTIN. [Suspect]
     Active Substance: GABAPENTIN
     Indication: FOOD CRAVING
     Dosage: 300 MG, QD
     Route: 048
     Dates: start: 20171206

REACTIONS (32)
  - Blood pressure increased [Unknown]
  - Heart rate increased [Unknown]
  - Slow speech [Unknown]
  - Joint range of motion decreased [Unknown]
  - Fall [Unknown]
  - Head injury [Unknown]
  - Insomnia [Not Recovered/Not Resolved]
  - Needle track marks [Unknown]
  - Dysarthria [Unknown]
  - Fatigue [Not Recovered/Not Resolved]
  - Blood triglycerides increased [Unknown]
  - Hypoaesthesia [Not Recovered/Not Resolved]
  - Dizziness [Unknown]
  - Injection site mass [Unknown]
  - Thinking abnormal [Unknown]
  - Asthenia [Not Recovered/Not Resolved]
  - Tinnitus [Unknown]
  - Blood glucose abnormal [Unknown]
  - Stress [Unknown]
  - Pain [Unknown]
  - Blood pressure systolic increased [Unknown]
  - Panic attack [Unknown]
  - Hot flush [Not Recovered/Not Resolved]
  - Paraesthesia [Not Recovered/Not Resolved]
  - Pallor [Unknown]
  - Influenza [Unknown]
  - Feeling abnormal [Unknown]
  - Anxiety [Recovering/Resolving]
  - Malaise [Unknown]
  - Blood cholesterol abnormal [Unknown]
  - Food craving [Unknown]
  - Weight decreased [Unknown]

NARRATIVE: CASE EVENT DATE: 201409
